FAERS Safety Report 9682606 (Version 1)
Quarter: 2013Q4

REPORT INFORMATION
  Report Type: Spontaneous
  Country: DE (occurrence: DE)
  Receive Date: 20131017
  Receipt Date: 20131017
  Transmission Date: 20140711
  Serious: Yes (Hospitalization)
  Sender: FDA-Public Use
  Company Number: DE-DRREDDYS-GER/GER/13/0034945

PATIENT
  Age: 60 Year
  Sex: Male
  Weight: 95 kg

DRUGS (3)
  1. METFORMIN [Suspect]
     Indication: TYPE 2 DIABETES MELLITUS
     Route: 048
     Dates: start: 20130912
  2. XELEVIA [Suspect]
     Indication: TYPE 2 DIABETES MELLITUS
     Route: 048
     Dates: start: 20130917, end: 20130924
  3. MARCUMAR [Concomitant]
     Indication: ARRHYTHMIA

REACTIONS (3)
  - C-reactive protein increased [Recovering/Resolving]
  - Feeling hot [Recovering/Resolving]
  - Local swelling [Recovering/Resolving]
